FAERS Safety Report 16067725 (Version 1)
Quarter: 2019Q2

REPORT INFORMATION
  Report Type: Spontaneous
  Country: US (occurrence: US)
  Receive Date: 20190313
  Receipt Date: 20190313
  Transmission Date: 20190711
  Serious: No
  Sender: FDA-Public Use
  Company Number: None

PATIENT
  Sex: Male

DRUGS (2)
  1. BUPROPION. [Suspect]
     Active Substance: BUPROPION
  2. NICOTINE TRANSDERMAL SYSTEM [Suspect]
     Active Substance: NICOTINE

REACTIONS (4)
  - Mood altered [None]
  - Drug ineffective [None]
  - Anger [None]
  - Psychotic disorder [None]
